FAERS Safety Report 7336250-4 (Version None)
Quarter: 2011Q1

REPORT INFORMATION
  Report Type: 
  Country: None (occurrence: None)
  Receive Date: 20110307
  Receipt Date: 20110222
  Transmission Date: 20110831
  Serious: Yes (Hospitalization, Other)
  Sender: FDA-Public Use
  Company Number: US-ACTELION-A-US2011-44619

PATIENT

DRUGS (3)
  1. TADALAFIL [Concomitant]
  2. TRACLEER [Suspect]
     Indication: PULMONARY ARTERIAL HYPERTENSION
     Dosage: UNK
     Route: 048
     Dates: start: 20040615
  3. COUMADIN [Concomitant]

REACTIONS (4)
  - LIVER TENDERNESS [None]
  - PNEUMONIA [None]
  - DIZZINESS [None]
  - HEADACHE [None]
